FAERS Safety Report 14263743 (Version 1)
Quarter: 2017Q4

REPORT INFORMATION
  Report Type: Spontaneous
  Country: IT (occurrence: IT)
  Receive Date: 20171208
  Receipt Date: 20171208
  Transmission Date: 20180321
  Serious: Yes (Hospitalization)
  Sender: FDA-Public Use
  Company Number: IT-PFIZER INC-2017519600

PATIENT
  Age: 56 Year
  Sex: Female

DRUGS (9)
  1. ZARELIS [Concomitant]
     Active Substance: VENLAFAXINE HYDROCHLORIDE
     Dosage: UNK
  2. LERCANIDIPINE [Concomitant]
     Active Substance: LERCANIDIPINE
     Dosage: UNK
  3. XANAX [Concomitant]
     Active Substance: ALPRAZOLAM
     Dosage: UNK
  4. ESOMEPRAZOLE SODIUM. [Concomitant]
     Active Substance: ESOMEPRAZOLE SODIUM
     Dosage: UNK
  5. RYTMONORM [Concomitant]
     Active Substance: PROPAFENONE
     Dosage: UNK
  6. CARDIOASPIRIN [Concomitant]
     Active Substance: ASPIRIN
     Dosage: UNK
  7. RAMIPRIL. [Concomitant]
     Active Substance: RAMIPRIL
     Dosage: UNK
  8. QUETIAPINE. [Concomitant]
     Active Substance: QUETIAPINE
     Dosage: UNK
  9. HALCION [Suspect]
     Active Substance: TRIAZOLAM
     Dosage: 8 DF, TOTAL
     Route: 048
     Dates: start: 20171027, end: 20171027

REACTIONS (2)
  - Suicide attempt [Recovered/Resolved]
  - Intentional overdose [Unknown]

NARRATIVE: CASE EVENT DATE: 20171027
